FAERS Safety Report 8312350-7 (Version None)
Quarter: 2012Q2

REPORT INFORMATION
  Report Type: 
  Country: None (occurrence: None)
  Receive Date: 20120425
  Receipt Date: 20120419
  Transmission Date: 20120825
  Serious: Yes (Hospitalization)
  Sender: FDA-Public Use
  Company Number: IT-AMGEN-ITACT2012014086

PATIENT
  Age: 69 Year
  Sex: Male
  Weight: 76 kg

DRUGS (8)
  1. PANITUMUMAB [Suspect]
     Indication: COLORECTAL CANCER METASTATIC
     Dosage: 462 MG, Q2WK
     Route: 042
     Dates: start: 20110419
  2. DILTIAZEM [Concomitant]
     Indication: HYPERTENSION
     Dosage: 180 MG, UNK
     Dates: start: 20110606
  3. OXALIPLATIN [Concomitant]
     Indication: COLORECTAL CANCER METASTATIC
  4. NYSTATINE [Concomitant]
     Indication: MUCOSAL INFLAMMATION
     Dosage: 3 UNK, UNK
     Dates: start: 20110606
  5. TRINIPLAS [Concomitant]
     Dosage: 10 MG, UNK
     Route: 062
     Dates: start: 20110606
  6. IRINOTECAN HCL [Concomitant]
     Indication: COLORECTAL CANCER METASTATIC
     Dosage: UNK
     Dates: end: 20110802
  7. LEUCOVORIN CALCIUM [Concomitant]
     Indication: COLORECTAL CANCER METASTATIC
  8. FLUOROURACIL [Concomitant]
     Indication: COLORECTAL CANCER METASTATIC

REACTIONS (2)
  - GASTRIC ULCER [None]
  - MUCOSAL INFLAMMATION [None]
